FAERS Safety Report 7836767-X (Version None)
Quarter: 2011Q4

REPORT INFORMATION
  Report Type: 
  Country: None (occurrence: None)
  Receive Date: 20111024
  Receipt Date: 20101201
  Transmission Date: 20120403
  Serious: No
  Sender: FDA-Public Use
  Company Number: US-ABBOTT-10P-163-0689813-00

PATIENT
  Age: 25 Year
  Sex: Female
  Weight: 150.27 kg

DRUGS (5)
  1. LUPRON DEPOT [Suspect]
     Dates: start: 20101118
  2. ADIPEX [Concomitant]
     Indication: PRODUCT USED FOR UNKNOWN INDICATION
  3. BYETTA [Concomitant]
     Indication: DIABETES MELLITUS
  4. TOPROL-XL [Concomitant]
     Indication: HYPERTENSION
  5. LUPRON DEPOT [Suspect]
     Indication: ENDOMETRIOSIS
     Dates: start: 20101018, end: 20101117

REACTIONS (2)
  - PELVIC PAIN [None]
  - DRUG INEFFECTIVE [None]
